FAERS Safety Report 10985394 (Version 1)
Quarter: 2015Q2

REPORT INFORMATION
  Report Type: Spontaneous
  Country: US (occurrence: US)
  Receive Date: 20150404
  Receipt Date: 20150404
  Transmission Date: 20150821
  Serious: No
  Sender: FDA-Public Use
  Company Number: US-SA-2014SA055144

PATIENT
  Age: 44 Year
  Sex: Male

DRUGS (1)
  1. ALLEGRA-D [Suspect]
     Active Substance: FEXOFENADINE\PSEUDOEPHEDRINE
     Indication: MULTIPLE ALLERGIES
     Route: 048

REACTIONS (4)
  - Pyrexia [Recovering/Resolving]
  - Extra dose administered [Unknown]
  - Cough [Recovering/Resolving]
  - Fatigue [Recovering/Resolving]
